FAERS Safety Report 17771119 (Version 1)
Quarter: 2020Q2

REPORT INFORMATION
  Report Type: Spontaneous
  Country: US (occurrence: US)
  Receive Date: 20200512
  Receipt Date: 20200512
  Transmission Date: 20200714
  Serious: Yes (Other)
  Sender: FDA-Public Use
  Company Number: None

PATIENT
  Age: 48 Year
  Sex: Male

DRUGS (19)
  1. SENNA-S [Concomitant]
     Active Substance: DOCUSATE SODIUM\SENNOSIDES
  2. TACROLIMUS. [Concomitant]
     Active Substance: TACROLIMUS
  3. AMLODIPINE [Concomitant]
     Active Substance: AMLODIPINE BESYLATE
  4. SILDENAFIL. [Suspect]
     Active Substance: SILDENAFIL
     Indication: PULMONARY HYPERTENSION
     Route: 048
     Dates: start: 20180801
  5. HUMALOG [Concomitant]
     Active Substance: INSULIN LISPRO
  6. PRAVASTATIN. [Concomitant]
     Active Substance: PRAVASTATIN
  7. PANTOPRAZOLE [Concomitant]
     Active Substance: PANTOPRAZOLE
  8. ACYCLOVIR. [Concomitant]
     Active Substance: ACYCLOVIR
  9. MYCOPHENOLAT [Concomitant]
     Active Substance: MYCOPHENOLATE MOFETIL
  10. ASPIRIN. [Concomitant]
     Active Substance: ASPIRIN
  11. SMZ-TMP DS [Concomitant]
     Active Substance: SULFAMETHOXAZOLE\TRIMETHOPRIM
  12. LANTUS [Concomitant]
     Active Substance: INSULIN GLARGINE
  13. SPIRONOLACT [Concomitant]
     Active Substance: SPIRONOLACTONE
  14. CLOTRIMAZOLE. [Concomitant]
     Active Substance: CLOTRIMAZOLE
  15. PREDNISONE. [Concomitant]
     Active Substance: PREDNISONE
  16. METOPROL SUC [Concomitant]
  17. POT CL MICRO [Concomitant]
  18. OS-CAL + D3 [Concomitant]
  19. BUMETADINE [Concomitant]
     Active Substance: BUMETANIDE

REACTIONS (1)
  - Heart transplant [None]
